FAERS Safety Report 5030162-7 (Version None)
Quarter: 2006Q2

REPORT INFORMATION
  Report Type: 
  Country: None (occurrence: None)
  Receive Date: 20060614
  Receipt Date: 20060602
  Transmission Date: 20061013
  Serious: Yes (Hospitalization, Other)
  Sender: FDA-Public Use
  Company Number: 2006051892

PATIENT
  Age: 49 Year
  Sex: Male
  Weight: 74.3899 kg

DRUGS (12)
  1. BEXTRA [Suspect]
     Indication: OSTEOARTHRITIS
     Dosage: 20 MG (20 MG, 1 IN 1 D), ORAL
     Route: 048
  2. TENOFOVIR (TENOFOVIR) [Suspect]
     Indication: HIV INFECTION
     Dosage: 600 MG (300 MG,BID), ORAL
     Route: 048
  3. LAMIVUDINE [Concomitant]
  4. EC (CYCLOPHOSPHAMIDE, EPIRUBICIN) [Concomitant]
  5. ABACAVIR [Concomitant]
  6. NEVIRAPINE [Concomitant]
  7. SAQUINAVIR [Concomitant]
  8. KALETRA [Concomitant]
  9. VENLAFAXINE HCL [Concomitant]
  10. GABAPENTIN [Concomitant]
  11. OLANZAPINE [Concomitant]
  12. FENOFIBRATE [Concomitant]

REACTIONS (2)
  - NEPHROTIC SYNDROME [None]
  - RENAL FAILURE ACUTE [None]
